FAERS Safety Report 12737665 (Version 1)
Quarter: 2016Q3

REPORT INFORMATION
  Report Type: Spontaneous
  Country: FR (occurrence: FR)
  Receive Date: 20160913
  Receipt Date: 20160913
  Transmission Date: 20161109
  Serious: Yes (Hospitalization, Other)
  Sender: FDA-Public Use
  Company Number: FR-PFIZER INC-2016412320

PATIENT
  Age: 13 Year
  Sex: Female
  Weight: 43 kg

DRUGS (9)
  1. METHYLPREDNISOLONE MYLAN /00049602/ [Suspect]
     Active Substance: METHYLPREDNISOLONE SODIUM SUCCINATE
     Dosage: 40 MG, UNK
     Route: 041
     Dates: start: 20160623, end: 20160625
  2. ZOPHREN /00955301/ [Concomitant]
     Active Substance: ONDANSETRON
     Dosage: 14 MG, UNK
     Route: 042
     Dates: start: 20160623, end: 20160625
  3. HOLOXAN [Suspect]
     Active Substance: IFOSFAMIDE
     Indication: EWING^S SARCOMA
     Dosage: 4200 MG, UNK
     Route: 041
     Dates: start: 20160623, end: 20160625
  4. UROMITEXAN [Concomitant]
     Active Substance: MESNA
     Dosage: 5040 MG, UNK
     Route: 042
     Dates: start: 20160623, end: 20160625
  5. ETOPOSIDE TEVA [Suspect]
     Active Substance: ETOPOSIDE
     Indication: EWING^S SARCOMA
     Dosage: 210 MG, UNK
     Route: 041
     Dates: start: 20160623, end: 20160625
  6. VINCRISTINE SULFATE. [Suspect]
     Active Substance: VINCRISTINE SULFATE
     Indication: EWING^S SARCOMA
     Dosage: 2 MG, SINGLE
     Route: 041
     Dates: start: 20160623, end: 20160623
  7. VOGALENE [Concomitant]
     Active Substance: METOPIMAZINE
     Dosage: 39.6 MG, UNK
     Route: 042
     Dates: start: 20160623, end: 20160625
  8. DOXORUBICIN TEVA [Suspect]
     Active Substance: DOXORUBICIN
     Indication: EWING^S SARCOMA
     Dosage: 28 MG, UNK
     Route: 042
     Dates: start: 20160623, end: 20160625
  9. BIONOLYTE 5% [Concomitant]
     Dosage: UNK

REACTIONS (5)
  - Febrile bone marrow aplasia [Recovered/Resolved]
  - Mucosal inflammation [Recovered/Resolved]
  - Decreased appetite [Recovered/Resolved]
  - Oral pain [Recovered/Resolved]
  - Anal inflammation [Recovered/Resolved]

NARRATIVE: CASE EVENT DATE: 20160701
